FAERS Safety Report 5573997-4 (Version None)
Quarter: 2007Q4

REPORT INFORMATION
  Report Type: 
  Country: None (occurrence: None)
  Receive Date: 20071226
  Receipt Date: 20071218
  Transmission Date: 20080405
  Serious: Yes (Other)
  Sender: FDA-Public Use
  Company Number: JP-MERCK-0712USA08154

PATIENT
  Age: 70 Year
  Sex: Male

DRUGS (6)
  1. FOSAMAX [Suspect]
     Indication: OSTEOPOROSIS
     Route: 048
     Dates: start: 20070731, end: 20071002
  2. PREDONINE [Concomitant]
     Indication: INTERSTITIAL LUNG DISEASE
     Route: 065
     Dates: start: 20060101
  3. [THERAPY UNSPECIFIED] [Concomitant]
     Route: 065
  4. ALINAMIN [Concomitant]
     Route: 065
     Dates: start: 20060301
  5. PRIMPERAN INJ [Concomitant]
     Route: 065
     Dates: start: 20060301
  6. CYANOCOBALAMIN [Concomitant]
     Route: 065
     Dates: start: 20060301

REACTIONS (1)
  - INTERSTITIAL LUNG DISEASE [None]
